FAERS Safety Report 14498306 (Version 1)
Quarter: 2018Q1

REPORT INFORMATION
  Report Type: Spontaneous
  Country: US (occurrence: US)
  Receive Date: 20180207
  Receipt Date: 20180207
  Transmission Date: 20180509
  Serious: No
  Sender: FDA-Public Use
  Company Number: US-BAYER-2018-023070

PATIENT
  Sex: Female

DRUGS (3)
  1. FINACEA [Suspect]
     Active Substance: AZELAIC ACID
     Indication: ROSACEA
     Dosage: UNK
     Route: 061
     Dates: start: 2017
  2. KETOCONAZOLE. [Concomitant]
     Active Substance: KETOCONAZOLE
  3. DAPSONE. [Concomitant]
     Active Substance: DAPSONE

REACTIONS (2)
  - Drug dispensing error [None]
  - Erythema [None]
